FAERS Safety Report 7416806-0 (Version None)
Quarter: 2011Q2

REPORT INFORMATION
  Report Type: 
  Country: None (occurrence: None)
  Receive Date: 20110406
  Receipt Date: 20110322
  Transmission Date: 20111010
  Serious: Yes (Hospitalization)
  Sender: FDA-Public Use
  Company Number: TPG2011A00505

PATIENT
  Age: 69 Year
  Sex: Female

DRUGS (5)
  1. MOLAXOLE (MACROGOL) [Concomitant]
  2. TAK-491CLD (TAK-491CLD) [Suspect]
     Indication: ESSENTIAL HYPERTENSION
     Dosage: TAK-491 40 MG CLD 12.5 MG (1 IN 1 D)
     Route: 048
     Dates: start: 20101020
  3. SIMVASTATIN [Concomitant]
  4. CLOBETASOLE (CLOBETASOL) [Concomitant]
  5. ESOMEPRAZOLE (ESOMEPRAZOLE) [Concomitant]

REACTIONS (1)
  - ATRIAL FIBRILLATION [None]
